FAERS Safety Report 7607926-6 (Version None)
Quarter: 2011Q3

REPORT INFORMATION
  Report Type: 
  Country: None (occurrence: None)
  Receive Date: 20110714
  Receipt Date: 20091122
  Transmission Date: 20111222
  Serious: Yes (Death, Other)
  Sender: FDA-Public Use
  Company Number: US-BAYER-200939868NA

PATIENT
  Age: 63 Year
  Sex: Female
  Weight: 92 kg

DRUGS (34)
  1. PAPAVERINE [Concomitant]
     Dosage: 60 MG, IRRIGATION
     Dates: start: 20060331, end: 20060331
  2. MAGNESIUM [Concomitant]
     Dosage: 1 G, PER PERFUSIONIST
     Dates: start: 20060331, end: 20060331
  3. AMICAR [Concomitant]
     Dosage: 10 MG, PER PERFUSIONIST
     Dates: start: 20060331, end: 20060331
  4. PLATELETS [Concomitant]
     Dosage: 1 U, UNK
     Route: 042
     Dates: start: 20060331, end: 20060331
  5. TRASYLOL [Suspect]
     Indication: PRODUCT USED FOR UNKNOWN INDICATION
     Dosage: UNK
     Route: 042
     Dates: start: 20060331
  6. NADOLOL [Concomitant]
     Dosage: 40 MG, QD
     Route: 048
  7. VICODIN [Concomitant]
     Dosage: UNK UNK, PRN
     Route: 048
  8. ZOCOR [Concomitant]
     Dosage: 80 MG, HS
     Route: 048
  9. SOLU-MEDROL [Concomitant]
     Dosage: 1 G, PER PERFUSIONIST
     Dates: start: 20060331, end: 20060331
  10. FENTANYL [Concomitant]
     Dosage: 1000 MCG
     Route: 042
     Dates: start: 20060331, end: 20060331
  11. TRASYLOL [Suspect]
     Indication: MITRAL VALVE REPLACEMENT
  12. INSULIN [Concomitant]
     Dosage: UNK
     Route: 042
     Dates: start: 20060331
  13. VERSED [Concomitant]
     Dosage: 10 MG, UNK
     Route: 042
     Dates: start: 20060331, end: 20060331
  14. LIDOCAINE [Concomitant]
     Dosage: 100 MG, PER PERFUSIONIST
     Dates: start: 20060331, end: 20060331
  15. PROPOFOL [Concomitant]
     Dosage: UNK
     Route: 042
     Dates: start: 20060331, end: 20060331
  16. ISOFLURANE [Concomitant]
     Dosage: UNK, (GAS)
     Dates: start: 20060331, end: 20060331
  17. NITROGLYCERIN [Concomitant]
     Route: 042
  18. INSULIN [Concomitant]
     Dosage: UNK (SLIDING SCALE)
     Route: 058
  19. SYNTHROID [Concomitant]
     Dosage: 137 MCG QD
     Route: 048
  20. PLASMALYTE 56 IN 5% DEXTROSE [Concomitant]
     Dosage: 500 ML, IRRIGATION
     Dates: start: 20060331, end: 20060331
  21. HEPARIN [Concomitant]
     Dosage: 44000 U, PER PERFUSIONIST
     Dates: start: 20060331, end: 20060331
  22. VECURONIUM BROMIDE [Concomitant]
     Dosage: 10 UNK
     Route: 042
     Dates: start: 20060331, end: 20060331
  23. ETOMIDATE [Concomitant]
     Dosage: 14 MG, UNK
     Route: 042
     Dates: start: 20060331, end: 20060331
  24. GLUCOPHAGE [Concomitant]
     Dosage: 1000 MG, BID
     Route: 048
  25. ACCUPRIL [Concomitant]
     Dosage: UNK
     Route: 048
  26. HEPARIN [Concomitant]
     Dosage: 5000 U, IRRIGATION
     Dates: start: 20060331, end: 20060331
  27. PAPAVERINE [Concomitant]
     Dosage: 8 ML (30MG/ML) RETRO BULBAR
     Dates: start: 20060331, end: 20060331
  28. CALCIUM CHLORIDE [Concomitant]
     Dosage: 2 G, PER PERFUSIONIST
     Dates: start: 20060331, end: 20060331
  29. FRESH FROZEN PLASMA [Concomitant]
     Dosage: 1 U, UNK
     Route: 042
     Dates: start: 20060331, end: 20060331
  30. ACETYLSALICYLIC ACID SRT [Concomitant]
     Dosage: 325 MG, QD
     Route: 048
  31. GENTAMYCIN SULFATE [Concomitant]
     Dosage: 400 MG IN 4 LITERS OF NORMAL SALINE (IRRIGATION)
     Dates: start: 20060331, end: 20060331
  32. LASIX [Concomitant]
     Route: 042
  33. SODIUM BICARBONATE [Concomitant]
     Dosage: 150 MEQ, PER PERFUSIONIST
     Dates: start: 20060331, end: 20060331
  34. RED BLOOD CELLS, CONCENTRATED [Concomitant]
     Dosage: 1 U, UNK
     Route: 042
     Dates: start: 20060331, end: 20060331

REACTIONS (13)
  - PAIN [None]
  - INJURY [None]
  - RENAL INJURY [None]
  - ANXIETY [None]
  - MULTI-ORGAN FAILURE [None]
  - UNEVALUABLE EVENT [None]
  - RENAL IMPAIRMENT [None]
  - RENAL FAILURE [None]
  - EMOTIONAL DISTRESS [None]
  - FEAR [None]
  - ANHEDONIA [None]
  - DEATH [None]
  - STRESS [None]
